FAERS Safety Report 10039208 (Version 1)
Quarter: 2014Q1

REPORT INFORMATION
  Report Type: Report from Study
  Country: NL (occurrence: NL)
  Receive Date: 20140326
  Receipt Date: 20140326
  Transmission Date: 20141002
  Serious: Yes (Other)
  Sender: FDA-Public Use
  Company Number: PHHY2014NL034818

PATIENT
  Sex: Female

DRUGS (3)
  1. ZOMETA [Suspect]
     Indication: BREAST CANCER METASTATIC
     Dosage: 4 MG PER 100 ML, ONCE PER 4 WEEKS
     Route: 041
  2. ZOMETA [Suspect]
     Dosage: 4 MG PER 100 ML, ONCE PER 4 WEEKS
     Route: 041
     Dates: start: 20130523
  3. ZOMETA [Suspect]
     Dosage: 4 MG PER 100 ML, ONCE PER 4 WEEKS
     Route: 041
     Dates: start: 20140224

REACTIONS (1)
  - Spinal column injury [Not Recovered/Not Resolved]
